FAERS Safety Report 4456331-2 (Version None)
Quarter: 2004Q3

REPORT INFORMATION
  Report Type: 
  Country: None (occurrence: None)
  Receive Date: 20040917
  Receipt Date: 20040830
  Transmission Date: 20050211
  Serious: Yes (Hospitalization)
  Sender: FDA-Public Use
  Company Number: USA040876751

PATIENT
  Sex: Female

DRUGS (8)
  1. HUMULIN N [Suspect]
     Indication: DIABETES MELLITUS
     Dosage: 18 U/1 DAY
     Dates: start: 19900101
  2. LASIX [Concomitant]
  3. ALLOPURINOL [Concomitant]
  4. LISINOPRIL [Concomitant]
  5. POTASSIUM [Concomitant]
  6. LOVASTATIN [Concomitant]
  7. ATENOLOL [Concomitant]
  8. ASPIRIN [Concomitant]

REACTIONS (3)
  - BLOOD GLUCOSE INCREASED [None]
  - HEART RATE DECREASED [None]
  - PHARMACEUTICAL PRODUCT COMPLAINT [None]
